FAERS Safety Report 8544169-6 (Version None)
Quarter: 2012Q3

REPORT INFORMATION
  Report Type: 
  Country: None (occurrence: None)
  Receive Date: 20120727
  Receipt Date: 20120716
  Transmission Date: 20120928
  Serious: Yes (Death)
  Sender: FDA-Public Use
  Company Number: FR-NAPPMUNDI-GBR-2012-0011041

PATIENT
  Sex: Male

DRUGS (7)
  1. RABEPRAZOLE SODIUM [Concomitant]
     Dosage: 10 MG, NOCTE
  2. OXYCONTIN [Suspect]
     Indication: PRODUCT USED FOR UNKNOWN INDICATION
     Dosage: UNK
     Route: 048
     Dates: start: 20120601, end: 20120629
  3. LEXOMIL [Concomitant]
     Dosage: 0.5 TABLET, DAILY
  4. FORLAX                             /00754501/ [Concomitant]
     Dosage: 2 TABLET, UNK
  5. OXYCODONE HYDROCHLORIDE [Suspect]
     Indication: PRODUCT USED FOR UNKNOWN INDICATION
     Dosage: UNK, PRN
  6. MOTILIUM                           /00498201/ [Concomitant]
  7. KAYEXALATE [Concomitant]
     Dosage: 2 MEASURING SPOONS AT LUNCH

REACTIONS (8)
  - DEATH [None]
  - ABDOMINAL DISCOMFORT [None]
  - TOXICITY TO VARIOUS AGENTS [None]
  - URINARY RETENTION [None]
  - ANXIETY [None]
  - AGITATION [None]
  - INFECTION [None]
  - CONDITION AGGRAVATED [None]
